FAERS Safety Report 7515511-X (Version None)
Quarter: 2011Q2

REPORT INFORMATION
  Report Type: 
  Country: None (occurrence: None)
  Receive Date: 20110601
  Receipt Date: 20100629
  Transmission Date: 20111010
  Serious: No
  Sender: FDA-Public Use
  Company Number: US-PFIZER INC-2010078240

PATIENT
  Sex: Male

DRUGS (1)
  1. CHANTIX [Suspect]
     Dosage: UNK
     Dates: start: 20100619

REACTIONS (10)
  - VOMITING [None]
  - STRESS [None]
  - PAROSMIA [None]
  - DYSPNOEA EXERTIONAL [None]
  - NAUSEA [None]
  - DYSGEUSIA [None]
  - IRRITABILITY [None]
  - INSOMNIA [None]
  - MALAISE [None]
  - ANGER [None]
